FAERS Safety Report 25616777 (Version 3)
Quarter: 2025Q3

REPORT INFORMATION
  Report Type: Spontaneous
  Country: EU (occurrence: EU)
  Receive Date: 20250729
  Receipt Date: 20250915
  Transmission Date: 20251020
  Serious: Yes (Hospitalization, Other)
  Sender: BIOVITRUM
  Company Number: EU-BIOVITRUM-2025-IT-010190

PATIENT
  Age: 12 Year
  Sex: Male

DRUGS (13)
  1. ANAKINRA [Suspect]
     Active Substance: ANAKINRA
     Indication: Haemophagocytic lymphohistiocytosis
     Route: 042
     Dates: start: 20250627, end: 20250710
  2. ANAKINRA [Suspect]
     Active Substance: ANAKINRA
     Dates: start: 20250721
  3. PREDNISONE [Concomitant]
     Active Substance: PREDNISONE
     Indication: Steroid therapy
     Route: 048
     Dates: start: 20250703
  4. PREDNISONE [Concomitant]
     Active Substance: PREDNISONE
     Route: 048
  5. METHYLPREDNISOLONE [Concomitant]
     Active Substance: METHYLPREDNISOLONE
     Indication: Steroid therapy
     Route: 042
     Dates: start: 20250709, end: 20250711
  6. METHYLPREDNISOLONE [Concomitant]
     Active Substance: METHYLPREDNISOLONE
     Route: 040
     Dates: start: 20250627, end: 20250629
  7. METHYLPREDNISOLONE [Concomitant]
     Active Substance: METHYLPREDNISOLONE
     Route: 042
     Dates: start: 20250630, end: 20250703
  8. METHYLPREDNISOLONE [Concomitant]
     Active Substance: METHYLPREDNISOLONE
     Route: 042
     Dates: start: 20250707, end: 20250708
  9. METHYLPREDNISOLONE [Concomitant]
     Active Substance: METHYLPREDNISOLONE
     Route: 042
     Dates: start: 20250712
  10. CYCLOSPORINE [Concomitant]
     Active Substance: CYCLOSPORINE
     Indication: Product used for unknown indication
     Route: 048
  11. CYCLOSPORINE [Concomitant]
     Active Substance: CYCLOSPORINE
     Route: 042
     Dates: start: 20250721
  12. CANAKINUMAB [Concomitant]
     Active Substance: CANAKINUMAB
     Indication: Product used for unknown indication
     Dates: start: 20250711
  13. HUMAN IMMUNOGLOBULIN G [Concomitant]
     Active Substance: HUMAN IMMUNOGLOBULIN G
     Indication: Product used for unknown indication
     Route: 042
     Dates: start: 20250716

REACTIONS (7)
  - Incorrect route of product administration [Unknown]
  - Off label use [Recovered/Resolved]
  - Haemophagocytic lymphohistiocytosis [Recovering/Resolving]
  - Leukocytosis [Unknown]
  - Pseudomonas infection [Recovering/Resolving]
  - Skin abrasion [Recovering/Resolving]
  - Condition aggravated [Recovering/Resolving]

NARRATIVE: CASE EVENT DATE: 20250627
